FAERS Safety Report 17615141 (Version 4)
Quarter: 2021Q1

REPORT INFORMATION
  Report Type: Spontaneous
  Country: US (occurrence: US)
  Receive Date: 20200402
  Receipt Date: 20210331
  Transmission Date: 20210419
  Serious: Yes (Hospitalization, Other)
  Sender: FDA-Public Use
  Company Number: US-PFIZER INC-2020136524

PATIENT
  Age: 59 Year
  Sex: Female

DRUGS (2)
  1. PRISTIQ EXTENDED?RELEASE [Suspect]
     Active Substance: DESVENLAFAXINE SUCCINATE
     Indication: DEPRESSION
     Dosage: 50 MG, 1X/DAY
     Route: 048
     Dates: start: 2010, end: 202007
  2. TRINTELLIX [Concomitant]
     Active Substance: VORTIOXETINE HYDROBROMIDE
     Indication: DEPRESSION
     Dosage: 5 MG

REACTIONS (6)
  - Arthritis infective [Not Recovered/Not Resolved]
  - Memory impairment [Unknown]
  - Localised infection [Unknown]
  - Pain [Unknown]
  - Hypokinesia [Unknown]
  - Illness [Unknown]

NARRATIVE: CASE EVENT DATE: 2017
